FAERS Safety Report 8590812 (Version 3)
Quarter: 2013Q2

REPORT INFORMATION
  Report Type: Spontaneous
  Country: US (occurrence: US)
  Receive Date: 20120601
  Receipt Date: 20130605
  Transmission Date: 20140414
  Serious: Yes (Life-Threatening, Hospitalization)
  Sender: FDA-Public Use
  Company Number: US-BAYER-2012-053528

PATIENT
  Age: 28 Year
  Sex: Female
  Weight: 56.69 kg

DRUGS (21)
  1. YASMIN [Suspect]
     Indication: CONTRACEPTION
     Dosage: UNK
     Dates: start: 2000, end: 20101215
  2. YASMIN [Suspect]
     Indication: CONTRACEPTION
     Dosage: UNK
     Dates: start: 2001, end: 20101215
  3. YASMIN [Suspect]
     Indication: CONTRACEPTION
     Dosage: UNK
     Dates: start: 20080216, end: 20101215
  4. DEXILANT [Concomitant]
  5. PREDNISONE [Concomitant]
     Indication: SYSTEMIC LUPUS ERYTHEMATOSUS
     Dosage: 40 MG PER DAY
     Dates: start: 201005, end: 201103
  6. PLAQUENIL [Concomitant]
     Indication: SYSTEMIC LUPUS ERYTHEMATOSUS
     Dosage: 200 MG, UNK
     Dates: start: 201011, end: 201106
  7. EUCERIN [Concomitant]
  8. ADVAIR [Concomitant]
     Indication: ASTHMA
     Dosage: UNK
     Dates: start: 1985
  9. ADVAIR [Concomitant]
     Indication: MULTIPLE ALLERGIES
  10. CLARITIN [Concomitant]
     Indication: ASTHMA
     Dosage: UNK
     Dates: start: 1995
  11. CLARITIN [Concomitant]
     Indication: MULTIPLE ALLERGIES
  12. ALBUTEROL [Concomitant]
     Indication: ASTHMA
     Dosage: UNK
     Dates: start: 1985
  13. ALBUTEROL [Concomitant]
     Indication: MULTIPLE ALLERGIES
  14. SINGULAIR [Concomitant]
  15. ZYRTEC [Concomitant]
  16. IMITREX [Concomitant]
     Dosage: UNK
     Dates: start: 2006
  17. NASONEX [Concomitant]
     Indication: ASTHMA
     Dosage: UNK
     Dates: start: 1995, end: 2011
  18. NASONEX [Concomitant]
     Indication: MULTIPLE ALLERGIES
  19. ANTIHISTAMINES [Concomitant]
     Indication: HYPERSENSITIVITY
  20. BENADRYL [Concomitant]
  21. TYLENOL [CHLORPHENAM MAL,DEXTROMET HBR,PARACET,PSEUDOEPH HCL] [Concomitant]

REACTIONS (5)
  - Pulmonary embolism [Recovered/Resolved]
  - Deep vein thrombosis [Recovered/Resolved]
  - Injury [Recovered/Resolved]
  - Pain [None]
  - Emotional distress [None]
